FAERS Safety Report 23240014 (Version 1)
Quarter: 2023Q4

REPORT INFORMATION
  Report Type: Spontaneous
  Country: US (occurrence: None)
  Receive Date: 20231128
  Receipt Date: 20231128
  Transmission Date: 20240110
  Serious: Yes (Other)
  Sender: FDA-Public Use
  Company Number: None

PATIENT
  Age: 66 Year
  Sex: Male

DRUGS (1)
  1. ERLEADA [Suspect]
     Active Substance: APALUTAMIDE
     Dosage: FREQUENCY : DAILY;?

REACTIONS (6)
  - Vitreous floaters [None]
  - Rash macular [None]
  - Back pain [None]
  - Hypoaesthesia [None]
  - Peripheral coldness [None]
  - Asthenia [None]
